FAERS Safety Report 16837534 (Version 5)
Quarter: 2020Q4

REPORT INFORMATION
  Report Type: Spontaneous
  Country: US (occurrence: US)
  Receive Date: 20190923
  Receipt Date: 20201015
  Transmission Date: 20210113
  Serious: No
  Sender: FDA-Public Use
  Company Number: US-TAKEDA-2019TUS053277

PATIENT
  Sex: Male

DRUGS (2)
  1. SAXENDA [Suspect]
     Active Substance: LIRAGLUTIDE
     Indication: PRODUCT USED FOR UNKNOWN INDICATION
     Dosage: UNK
     Route: 065
  2. TRINTELLIX [Suspect]
     Active Substance: VORTIOXETINE HYDROBROMIDE
     Indication: MAJOR DEPRESSION
     Dosage: 20 MILLIGRAM, QD
     Route: 048
     Dates: start: 201809

REACTIONS (8)
  - Crying [Unknown]
  - Oral contusion [Unknown]
  - Contusion [Unknown]
  - Fear [Unknown]
  - Disturbance in attention [Unknown]
  - Feeling abnormal [Unknown]
  - Dizziness [Unknown]
  - Weight decreased [Unknown]
